FAERS Safety Report 8922143 (Version 1)
Quarter: 2012Q4

REPORT INFORMATION
  Report Type: Spontaneous
  Country: CA (occurrence: None)
  Receive Date: 20121109
  Receipt Date: 20121109
  Transmission Date: 20130627
  Serious: Yes (Hospitalization)
  Sender: FDA-Public Use
  Company Number: 2012S1000266

PATIENT
  Age: 65 Year
  Sex: Male

DRUGS (10)
  1. CUBICIN [Suspect]
     Indication: ENTEROCOCCAL INFECTION
     Route: 042
     Dates: start: 20111228, end: 20111230
  2. PREDNISONE [Concomitant]
  3. CYCLOSPORINE [Concomitant]
  4. FUROSEMIDE [Concomitant]
  5. PANTOPRAZOLE [Concomitant]
  6. L-THYROXINE [Concomitant]
  7. METOPROLOL [Concomitant]
  8. EPOETIN NOS [Concomitant]
  9. TINZAPARIN [Concomitant]
  10. HUMULIN N [Concomitant]

REACTIONS (4)
  - Haemoglobin decreased [None]
  - White blood cell count decreased [None]
  - Blood sodium decreased [None]
  - Hypersensitivity [None]
